FAERS Safety Report 19087327 (Version 5)
Quarter: 2021Q2

REPORT INFORMATION
  Report Type: Other
  Country: ES (occurrence: ES)
  Receive Date: 20210402
  Receipt Date: 20210511
  Transmission Date: 20210717
  Serious: Yes (Hospitalization)
  Sender: FDA-Public Use
  Company Number: ES-ROCHE-2799334

PATIENT
  Age: 74 Year
  Sex: Male
  Weight: 68 kg

DRUGS (7)
  1. CLORTALIDONA [Concomitant]
     Active Substance: CHLORTHALIDONE
     Indication: HYPERTENSION
     Route: 048
  2. DEXAMET [Concomitant]
     Indication: METASTASES TO CENTRAL NERVOUS SYSTEM
     Route: 048
     Dates: start: 20210204, end: 20210317
  3. PRALSETINIB. [Suspect]
     Active Substance: PRALSETINIB
     Indication: NON-SMALL CELL LUNG CANCER
     Dosage: LAST DOSE PRIOR TO SAE ONSET: 16/MAR/2021
     Route: 048
     Dates: start: 20210226
  4. CISPLATIN. [Concomitant]
     Active Substance: CISPLATIN
     Dosage: 2 CYCLES
     Dates: start: 20201109
  5. VINORELBINE [Concomitant]
     Active Substance: VINORELBINE TARTRATE
     Dosage: 2 CYCLES
     Dates: start: 20201109
  6. ATENOLOL. [Concomitant]
     Active Substance: ATENOLOL
     Indication: HYPERTENSION
     Route: 048
  7. ENOXAPARIN [Concomitant]
     Active Substance: ENOXAPARIN
     Indication: DEEP VEIN THROMBOSIS
     Route: 058
     Dates: start: 20201215, end: 20210316

REACTIONS (3)
  - Intestinal haemorrhage [Recovered/Resolved]
  - Cytomegalovirus infection [Recovered/Resolved]
  - Pancytopenia [Recovered/Resolved with Sequelae]

NARRATIVE: CASE EVENT DATE: 20210316
